FAERS Safety Report 8609335 (Version 2)
Quarter: 2013Q2

REPORT INFORMATION
  Report Type: Spontaneous
  Country: US (occurrence: US)
  Receive Date: 20120612
  Receipt Date: 20130619
  Transmission Date: 20140414
  Serious: No
  Sender: FDA-Public Use
  Company Number: US-ASTRAZENECA-2012SE36065

PATIENT
  Age: 764 Month
  Sex: Female

DRUGS (12)
  1. NEXIUM [Suspect]
     Indication: HELICOBACTER INFECTION
     Route: 048
  2. NEXIUM [Suspect]
     Indication: HELICOBACTER INFECTION
     Route: 048
     Dates: start: 20081215
  3. NEXIUM [Suspect]
     Indication: HELICOBACTER INFECTION
     Route: 048
     Dates: start: 20100128
  4. TUMS [Concomitant]
  5. ROLAIDS [Concomitant]
  6. ELAVIL [Concomitant]
     Dates: start: 20080924
  7. ELAVIL [Concomitant]
     Dates: start: 20091105
  8. SINGULAIR [Concomitant]
     Dates: start: 20080924
  9. CRANBERRY PILLS [Concomitant]
     Dosage: QD
     Dates: start: 20090218
  10. FLEXERIL [Concomitant]
     Dosage: QHS
     Dates: start: 20090508
  11. MOBIC [Concomitant]
     Dosage: QD
     Dates: start: 20090508
  12. ASA [Concomitant]
     Dosage: QD
     Dates: start: 20091105

REACTIONS (3)
  - Osteoporosis [Unknown]
  - Multiple fractures [Unknown]
  - Osteopenia [Unknown]
